FAERS Safety Report 9891824 (Version 1)
Quarter: 2014Q1

REPORT INFORMATION
  Report Type: Spontaneous
  Country: RO (occurrence: RO)
  Receive Date: 20140212
  Receipt Date: 20140212
  Transmission Date: 20141002
  Serious: Yes (Death)
  Sender: FDA-Public Use
  Company Number: RO-ABBVIE-14P-135-1199938-00

PATIENT
  Age: 42 Year
  Sex: Male
  Weight: 115 kg

DRUGS (2)
  1. HUMIRA [Suspect]
     Indication: PSORIASIS
     Dosage: 40 MG AT 2 WEEKS
     Route: 058
     Dates: start: 201206
  2. PERINDOPRILUM [Concomitant]
     Indication: HYPERTENSION
     Route: 048

REACTIONS (1)
  - Myocardial infarction [Fatal]
